FAERS Safety Report 15789170 (Version 1)
Quarter: 2018Q4

REPORT INFORMATION
  Report Type: Spontaneous
  Country: US (occurrence: US)
  Receive Date: 20181231
  Receipt Date: 20181231
  Transmission Date: 20190205
  Serious: No
  Sender: FDA-Public Use
  Company Number: None

PATIENT

DRUGS (2)
  1. FLOVENT [Suspect]
     Active Substance: FLUTICASONE PROPIONATE
  2. VENTOLIN [Suspect]
     Active Substance: ALBUTEROL SULFATE

REACTIONS (3)
  - Product dispensing error [None]
  - Transcription medication error [None]
  - Drug dispensed to wrong patient [None]
